FAERS Safety Report 25225435 (Version 1)
Quarter: 2025Q2

REPORT INFORMATION
  Report Type: Other
  Country: US (occurrence: US)
  Receive Date: 20250422
  Receipt Date: 20250422
  Transmission Date: 20250717
  Serious: Yes (Hospitalization, Other)
  Sender: APPCO PHARMA LLC
  Company Number: US-Appco Pharma LLC-2175365

PATIENT
  Age: 51 Year
  Sex: Female

DRUGS (1)
  1. HYDROXYCHLOROQUINE SULFATE [Suspect]
     Active Substance: HYDROXYCHLOROQUINE SULFATE
     Indication: Systemic lupus erythematosus

REACTIONS (6)
  - Cardiomyopathy [Unknown]
  - Condition aggravated [Unknown]
  - Toxicity to various agents [Unknown]
  - Cardiogenic shock [Unknown]
  - Myocardial infarction [Unknown]
  - Heart failure with reduced ejection fraction [Unknown]
